FAERS Safety Report 6990345-3 (Version None)
Quarter: 2010Q3

REPORT INFORMATION
  Report Type: 
  Country: None (occurrence: None)
  Receive Date: 20100916
  Receipt Date: 20100601
  Transmission Date: 20110219
  Serious: Yes (Other)
  Sender: FDA-Public Use
  Company Number: TR-PFIZER INC-2010065184

PATIENT
  Sex: Female
  Weight: 48.5 kg

DRUGS (6)
  1. LYRICA [Suspect]
     Indication: NEURALGIA
     Dosage: 75 MG, 2X/DAY
     Route: 048
     Dates: start: 20100425, end: 20100425
  2. FOSTER 100/6 [Concomitant]
     Indication: ASTHMA
     Dosage: UNK
     Route: 048
     Dates: start: 20090301
  3. PULMICORT [Concomitant]
     Indication: ASTHMA
     Dosage: UNK
     Route: 048
     Dates: start: 20060201
  4. TEFOR [Concomitant]
     Indication: HYPOTHYROIDISM
     Dosage: 2.5 MG, 1X/DAY
     Route: 048
     Dates: start: 19870101
  5. ANGELICA [Concomitant]
     Indication: HYSTERECTOMY
     Dosage: 1 MG, 1X/DAY
     Route: 048
     Dates: start: 20030101, end: 20100430
  6. DROSPIRENONE/ESTRADIOL [Concomitant]
     Indication: HYSTERECTOMY
     Dosage: UNK

REACTIONS (1)
  - EPILEPSY [None]
